FAERS Safety Report 8317693 (Version 2)
Quarter: 2013Q2

REPORT INFORMATION
  Report Type: Report from Study
  Country: VE (occurrence: VE)
  Receive Date: 20120102
  Receipt Date: 20130529
  Transmission Date: 20140414
  Serious: Yes (Hospitalization)
  Sender: FDA-Public Use
  Company Number: PHHY2011VE113196

PATIENT
  Age: 73 Year
  Sex: Female

DRUGS (4)
  1. ACLASTA [Suspect]
     Indication: OSTEOPOROSIS
     Dosage: 5 MG
     Route: 042
     Dates: start: 20110415
  2. ANTIBIOTICS [Concomitant]
  3. PREDNISONE [Concomitant]
     Indication: OSTEOARTHRITIS
     Dosage: 5 MG, UNK
     Route: 048
  4. CALCIBON D [Concomitant]
     Indication: MINERAL SUPPLEMENTATION
     Dosage: 1500 MG, UNK
     Route: 048
     Dates: start: 2011

REACTIONS (3)
  - Wound [Recovered/Resolved]
  - Device material issue [Unknown]
  - Pain [Unknown]
